FAERS Safety Report 21907293 (Version 2)
Quarter: 2024Q2

REPORT INFORMATION
  Report Type: Spontaneous
  Country: US (occurrence: US)
  Receive Date: 20230125
  Receipt Date: 20240529
  Transmission Date: 20240716
  Serious: Yes (Other)
  Sender: FDA-Public Use
  Company Number: US-SA-SAC20230124000329

PATIENT
  Age: 38 Year
  Sex: Female

DRUGS (1)
  1. CEREZYME [Suspect]
     Active Substance: IMIGLUCERASE
     Indication: Gaucher^s disease
     Dosage: 2000 U, QOW
     Route: 042
     Dates: start: 20150514

REACTIONS (4)
  - Hypokalaemia [Unknown]
  - Hypomagnesaemia [Unknown]
  - Palpitations [Unknown]
  - Migraine [Unknown]

NARRATIVE: CASE EVENT DATE: 20230114
